FAERS Safety Report 7396536-4 (Version None)
Quarter: 2011Q1

REPORT INFORMATION
  Report Type: 
  Country: None (occurrence: None)
  Receive Date: 20110325
  Receipt Date: 20110318
  Transmission Date: 20110831
  Serious: Yes (Hospitalization, Disabling, Other)
  Sender: FDA-Public Use
  Company Number: 2010SP040550

PATIENT
  Age: 36 Year
  Sex: Female
  Weight: 86.1834 kg

DRUGS (5)
  1. NUVARING [Suspect]
     Indication: CONTRACEPTION
     Dates: start: 20070810, end: 20080814
  2. MARIJUANA [Concomitant]
  3. LEXAPRO [Suspect]
     Indication: ANXIETY
  4. DILANTIN [Suspect]
     Indication: CONVULSION
  5. ADVIL LIQUI-GELS [Concomitant]

REACTIONS (33)
  - AMNESIA [None]
  - HOT FLUSH [None]
  - PANIC DISORDER [None]
  - NECK PAIN [None]
  - CONVULSION [None]
  - TRANSVERSE SINUS THROMBOSIS [None]
  - SINUS CONGESTION [None]
  - BRAIN MIDLINE SHIFT [None]
  - POST-TRAUMATIC STRESS DISORDER [None]
  - ANXIETY [None]
  - PREGNANCY TEST POSITIVE [None]
  - CEREBRAL HAEMORRHAGE [None]
  - VISUAL IMPAIRMENT [None]
  - HYPERHIDROSIS [None]
  - INSOMNIA [None]
  - HEAD INJURY [None]
  - SCOTOMA [None]
  - AMBLYOPIA [None]
  - ARTERIOVENOUS MALFORMATION [None]
  - BRAIN OEDEMA [None]
  - BRUXISM [None]
  - HYPERCOAGULATION [None]
  - DEPRESSION [None]
  - CHOLELITHIASIS [None]
  - VENOUS THROMBOSIS [None]
  - NIGHT SWEATS [None]
  - VISUAL FIELD DEFECT [None]
  - ENCEPHALOMALACIA [None]
  - HEPATIC ENZYME INCREASED [None]
  - LIBIDO DECREASED [None]
  - CHOLECYSTITIS [None]
  - HORMONE LEVEL ABNORMAL [None]
  - HYPOVITAMINOSIS [None]
